FAERS Safety Report 17411091 (Version 1)
Quarter: 2020Q1

REPORT INFORMATION
  Report Type: Spontaneous
  Country: US (occurrence: US)
  Receive Date: 20200128
  Receipt Date: 20200128
  Transmission Date: 20200409
  Serious: No
  Sender: FDA-Public Use
  Company Number: None

PATIENT
  Age: 24 Year
  Sex: Female

DRUGS (1)
  1. PULMOZYME [Suspect]
     Active Substance: DORNASE ALFA
     Route: 055
     Dates: start: 201809

REACTIONS (4)
  - Sneezing [None]
  - Oropharyngeal pain [None]
  - Nasal congestion [None]
  - Rhinorrhoea [None]

NARRATIVE: CASE EVENT DATE: 20200114
